FAERS Safety Report 5756146-9 (Version None)
Quarter: 2008Q2

REPORT INFORMATION
  Report Type: 
  Country: None (occurrence: None)
  Receive Date: 20080602
  Receipt Date: 20080522
  Transmission Date: 20081010
  Serious: Yes (Disabling)
  Sender: FDA-Public Use
  Company Number: SG-MERCK-0804SGP00002

PATIENT
  Age: 51 Year
  Sex: Male

DRUGS (3)
  1. DORZOLAMIDE HYDROCHLORIDE [Suspect]
     Indication: GLAUCOMA
     Route: 047
     Dates: start: 20050406, end: 20080317
  2. LATANOPROST [Concomitant]
     Route: 047
  3. BETAXOLOL HYDROCHLORIDE [Concomitant]
     Route: 047

REACTIONS (4)
  - CORNEAL EROSION [None]
  - CORNEAL STAINING [None]
  - EYE PAIN [None]
  - VISUAL ACUITY REDUCED [None]
